FAERS Safety Report 22214448 (Version 5)
Quarter: 2023Q2

REPORT INFORMATION
  Report Type: Spontaneous
  Country: CA (occurrence: CA)
  Receive Date: 20230414
  Receipt Date: 20230515
  Transmission Date: 20230721
  Serious: Yes (Hospitalization, Other)
  Sender: FDA-Public Use
  Company Number: CA-BIOMARINAP-CA-2023-149621

PATIENT

DRUGS (4)
  1. NAGLAZYME [Suspect]
     Active Substance: GALSULFASE
     Indication: Mucopolysaccharidosis VI
     Dosage: 1 MILLIGRAM/KILOGRAM, QW
     Route: 042
     Dates: start: 20170627
  2. NAGLAZYME [Suspect]
     Active Substance: GALSULFASE
     Dosage: 30 MILLIGRAM, QW
     Route: 042
     Dates: start: 20230414
  3. ACETAMINOPHEN [Concomitant]
     Active Substance: ACETAMINOPHEN
     Indication: Premedication
     Dosage: 320 MILLIGRAM, SINGLE
     Route: 048
     Dates: start: 20170627
  4. Maxilene [Concomitant]
     Indication: Premedication
     Dosage: UNK, SINGLE
     Route: 003

REACTIONS (13)
  - Infected cyst [Not Recovered/Not Resolved]
  - Scoliosis [Not Recovered/Not Resolved]
  - Pain [Recovered/Resolved]
  - Feeling hot [Not Recovered/Not Resolved]
  - Oedema [Recovering/Resolving]
  - Pain in extremity [Not Recovered/Not Resolved]
  - Erythema [Not Recovered/Not Resolved]
  - Pyrexia [Not Recovered/Not Resolved]
  - Fatigue [Not Recovered/Not Resolved]
  - Bacterial infection [Recovering/Resolving]
  - Poor venous access [Not Recovered/Not Resolved]
  - Crying [Recovered/Resolved]
  - Catheter site erythema [Recovered/Resolved]

NARRATIVE: CASE EVENT DATE: 20230401
